FAERS Safety Report 16206309 (Version 1)
Quarter: 2019Q2

REPORT INFORMATION
  Report Type: Spontaneous
  Country: US (occurrence: US)
  Receive Date: 20190312
  Receipt Date: 20190312
  Transmission Date: 20190711
  Serious: Yes (Hospitalization)
  Sender: FDA-Public Use
  Company Number: None

PATIENT
  Age: 75 Year
  Sex: Female
  Weight: 51.71 kg

DRUGS (8)
  1. WOBENZYM [Concomitant]
  2. VITAMIN B12 [Concomitant]
     Active Substance: CYANOCOBALAMIN
  3. VITAMIN C [Concomitant]
     Active Substance: ASCORBIC ACID
  4. RESTASIS [Concomitant]
     Active Substance: CYCLOSPORINE
  5. MAGNESIUM [Concomitant]
     Active Substance: MAGNESIUM
  6. RECLAST [Suspect]
     Active Substance: ZOLEDRONIC ACID
     Indication: OSTEOPOROSIS
     Dosage: ONCE A YEAR INFUSION
     Dates: start: 20190121
  7. LISINOPRIL. [Concomitant]
     Active Substance: LISINOPRIL
  8. MYRBETRIQ [Concomitant]
     Active Substance: MIRABEGRON

REACTIONS (3)
  - Dizziness [None]
  - Vomiting [None]
  - Gait inability [None]

NARRATIVE: CASE EVENT DATE: 20190121
